FAERS Safety Report 11327768 (Version 4)
Quarter: 2016Q1

REPORT INFORMATION
  Report Type: Spontaneous
  Country: JP (occurrence: JP)
  Receive Date: 20150731
  Receipt Date: 20160328
  Transmission Date: 20160525
  Serious: Yes (Death, Other)
  Sender: FDA-Public Use
  Company Number: JP-GILEAD-2015-0165437

PATIENT

DRUGS (16)
  1. BIO-THREE [Concomitant]
     Active Substance: HERBALS
     Indication: PRODUCT USED FOR UNKNOWN INDICATION
     Dosage: 1 DF, TID
     Route: 065
  2. TENOFOVIR DISOPROXIL FUMARATE. [Suspect]
     Active Substance: TENOFOVIR DISOPROXIL FUMARATE
     Indication: CHRONIC HEPATITIS B
     Dosage: 300 MG, Q1WK
     Route: 048
     Dates: start: 20150113
  3. REMITCH [Concomitant]
     Active Substance: NALFURAFINE HYDROCHLORIDE
     Indication: PRODUCT USED FOR UNKNOWN INDICATION
     Dosage: 2.5 ?G, QD
     Route: 065
  4. REMITCH [Concomitant]
     Active Substance: NALFURAFINE HYDROCHLORIDE
     Dosage: 2.5 ?G, QD
  5. BIO-THREE [Concomitant]
     Active Substance: HERBALS
     Dosage: 1 DF, TID
  6. BI SIFROL [Concomitant]
     Active Substance: PRAMIPEXOLE
     Indication: PRODUCT USED FOR UNKNOWN INDICATION
     Dosage: 0.125 MG, QD
     Route: 065
  7. FEBURIC [Concomitant]
     Active Substance: FEBUXOSTAT
     Dosage: 10 MG, QD
  8. BI SIFROL [Concomitant]
     Active Substance: PRAMIPEXOLE
     Dosage: 0.125 MG, QD
  9. FEXOFENADINE HYDROCHLORIDE TABLETS [Concomitant]
     Active Substance: FEXOFENADINE HYDROCHLORIDE
     Indication: PRODUCT USED FOR UNKNOWN INDICATION
     Dosage: 60 MG, QD
     Route: 065
  10. ZOLPIDEM TARTRATE. [Concomitant]
     Active Substance: ZOLPIDEM TARTRATE
     Indication: PRODUCT USED FOR UNKNOWN INDICATION
     Dosage: 5 MG, QD
     Route: 065
  11. ZOLPIDEM TARTRATE. [Concomitant]
     Active Substance: ZOLPIDEM TARTRATE
     Dosage: 5 MG, QD
  12. ZOLPIDEM TARTRATE. [Concomitant]
     Active Substance: ZOLPIDEM TARTRATE
     Dosage: 5 MG, QD
  13. FEXOFENADINE HYDROCHLORIDE TABLETS [Concomitant]
     Active Substance: FEXOFENADINE HYDROCHLORIDE
     Dosage: 60 MG, QD
  14. FEBURIC [Concomitant]
     Active Substance: FEBUXOSTAT
     Indication: PRODUCT USED FOR UNKNOWN INDICATION
     Dosage: 10 MG, QD
     Route: 065
  15. CALTAN OD [Concomitant]
     Dosage: 1000 MG, TID
  16. CALTAN OD [Concomitant]
     Indication: PRODUCT USED FOR UNKNOWN INDICATION
     Dosage: 1000 MG, TID
     Route: 065

REACTIONS (14)
  - Peritonitis [Fatal]
  - Jaundice [Recovering/Resolving]
  - Large intestine perforation [Unknown]
  - Septic shock [Fatal]
  - Tumour haemorrhage [Unknown]
  - Pancreatitis [Recovered/Resolved]
  - Liver disorder [Recovering/Resolving]
  - Tumour invasion [Unknown]
  - Abdominal pain [Unknown]
  - Abdominal pain upper [Recovering/Resolving]
  - Cholestasis [Not Recovered/Not Resolved]
  - Blood bilirubin increased [Not Recovered/Not Resolved]
  - Amylase increased [Unknown]
  - Abdominal pain upper [Recovering/Resolving]

NARRATIVE: CASE EVENT DATE: 20150712
